FAERS Safety Report 13883080 (Version 1)
Quarter: 2017Q3

REPORT INFORMATION
  Report Type: Spontaneous
  Country: CN (occurrence: CN)
  Receive Date: 20170818
  Receipt Date: 20170818
  Transmission Date: 20171127
  Serious: Yes (Life-Threatening)
  Sender: FDA-Public Use
  Company Number: CN-MALLINCKRODT-T201703427

PATIENT
  Age: 78 Year
  Sex: Female
  Weight: 60 kg

DRUGS (1)
  1. OXYCODONE/ACETAMINOPHEN [Suspect]
     Active Substance: ACETAMINOPHEN\OXYCODONE HYDROCHLORIDE
     Indication: ANALGESIC THERAPY
     Dosage: 3 TIMES/DAY
     Route: 048
     Dates: start: 20160605, end: 20170505

REACTIONS (1)
  - Gastrointestinal haemorrhage [Recovering/Resolving]

NARRATIVE: CASE EVENT DATE: 20170505
